FAERS Safety Report 8816942 (Version 1)
Quarter: 2012Q4

REPORT INFORMATION
  Report Type: Spontaneous
  Country: US (occurrence: None)
  Receive Date: 20121003
  Receipt Date: 20121003
  Transmission Date: 20130627
  Serious: Yes (Hospitalization)
  Sender: FDA-Public Use
  Company Number: None

PATIENT
  Age: 30 Year
  Sex: Female
  Weight: 102 kg

DRUGS (1)
  1. FLEBOGAMMA [Suspect]
     Indication: IMMUNODEFICIENCY

REACTIONS (5)
  - Headache [None]
  - Nausea [None]
  - Vomiting [None]
  - Photophobia [None]
  - Meningitis aseptic [None]
